FAERS Safety Report 15085327 (Version 1)
Quarter: 2018Q2

REPORT INFORMATION
  Report Type: Spontaneous
  Country: US (occurrence: US)
  Receive Date: 20180628
  Receipt Date: 20180628
  Transmission Date: 20180711
  Serious: No
  Sender: FDA-Public Use
  Company Number: US-LUNDBECK-DKLU2050341

PATIENT
  Age: 77 Year
  Sex: Female

DRUGS (2)
  1. NORTHERA [Suspect]
     Active Substance: DROXIDOPA
     Indication: ORTHOSTATIC HYPOTENSION
     Route: 048
     Dates: start: 20160920, end: 20180614
  2. NORTHERA [Suspect]
     Active Substance: DROXIDOPA
     Indication: PARKINSON^S DISEASE

REACTIONS (1)
  - Hypertension [Unknown]
